FAERS Safety Report 10246140 (Version 1)
Quarter: 2014Q2

REPORT INFORMATION
  Report Type: Spontaneous
  Country: US (occurrence: AR)
  Receive Date: 20140619
  Receipt Date: 20140619
  Transmission Date: 20141212
  Serious: Yes (Other)
  Sender: FDA-Public Use
  Company Number: 2014SP003353

PATIENT
  Age: 69 Year
  Sex: Female

DRUGS (2)
  1. METHOTREXATE [Suspect]
     Indication: RHEUMATOID ARTHRITIS
     Dates: start: 20000504
  2. ETANERCEPT [Suspect]
     Indication: RHEUMATOID ARTHRITIS
     Dates: start: 20000504

REACTIONS (4)
  - Gastric haemorrhage [Recovered/Resolved]
  - Drug intolerance [Not Recovered/Not Resolved]
  - Biliary tract disorder [Recovered/Resolved]
  - Gait disturbance [Not Recovered/Not Resolved]
